FAERS Safety Report 12572380 (Version 4)
Quarter: 2016Q3

REPORT INFORMATION
  Report Type: Spontaneous
  Country: FI (occurrence: FI)
  Receive Date: 20160719
  Receipt Date: 20160823
  Transmission Date: 20161109
  Serious: Yes (Hospitalization, Other)
  Sender: FDA-Public Use
  Company Number: FI-ASTRAZENECA-2016SE76651

PATIENT
  Age: 14676 Day
  Sex: Female

DRUGS (16)
  1. LYRICA [Concomitant]
     Active Substance: PREGABALIN
  2. SERETIDE [Concomitant]
     Active Substance: FLUTICASONE PROPIONATE\SALMETEROL XINAFOATE
     Dosage: 50 /500 UG, 1-2X2
     Route: 055
  3. TRIMOPAN [Concomitant]
  4. PARA-TABS [Concomitant]
     Active Substance: ACETAMINOPHEN
     Dosage: 1X1-3
  5. BYDUREON [Suspect]
     Active Substance: EXENATIDE
     Indication: DIABETES MELLITUS
     Route: 058
     Dates: start: 20160601, end: 20160625
  6. VENTOLINE DISKUS [Concomitant]
     Dosage: 200 UG/DOSE, 1-2 X2-3
     Route: 055
  7. ZOLT [Concomitant]
     Active Substance: LANSOPRAZOLE
  8. CERAZETTE [Concomitant]
     Active Substance: DESOGESTREL
  9. METFOREM [Concomitant]
     Active Substance: METFORMIN HYDROCHLORIDE
  10. MONTELUKAST ORION [Concomitant]
  11. ORIPTAN [Concomitant]
     Dosage: AS NEEDED, MAX 2
  12. JANUVIA [Concomitant]
     Active Substance: SITAGLIPTIN PHOSPHATE
     Dosage: 25.0MG UNKNOWN
  13. CALCHICHEW D3 EXTRA [Concomitant]
     Dosage: 500 MG/20 UG CHEWING TABLET, 1X2
  14. TRADOLAN RETARD [Concomitant]
     Active Substance: TRAMADOL HYDROCHLORIDE
     Dosage: 3/DAY
  15. BETMIGA [Concomitant]
     Active Substance: MIRABEGRON
  16. BETMIGA [Concomitant]
     Active Substance: MIRABEGRON

REACTIONS (4)
  - Injection site abscess [Unknown]
  - Impaired healing [Unknown]
  - Injection site infection [Unknown]
  - Injection site pain [Unknown]

NARRATIVE: CASE EVENT DATE: 20160620
